FAERS Safety Report 7478207-9 (Version None)
Quarter: 2011Q2

REPORT INFORMATION
  Report Type: 
  Country: None (occurrence: None)
  Receive Date: 20110513
  Receipt Date: 20110502
  Transmission Date: 20111010
  Serious: Yes (Other)
  Sender: FDA-Public Use
  Company Number: CA-JNJFOC-20110501877

PATIENT
  Age: 53 Year
  Sex: Male
  Weight: 126.55 kg

DRUGS (1)
  1. NICODERM [Suspect]
     Indication: PRODUCT USED FOR UNKNOWN INDICATION
     Route: 062

REACTIONS (2)
  - APPLICATION SITE PAIN [None]
  - APPLICATION SITE URTICARIA [None]
